FAERS Safety Report 7630508-7 (Version None)
Quarter: 2011Q3

REPORT INFORMATION
  Report Type: 
  Country: None (occurrence: None)
  Receive Date: 20110722
  Receipt Date: 20110708
  Transmission Date: 20111222
  Serious: Yes (Hospitalization)
  Sender: FDA-Public Use
  Company Number: JP-WATSON-2011-10844

PATIENT
  Age: 59 Year
  Sex: Male

DRUGS (2)
  1. TACROLIMUS [Suspect]
     Indication: PROPHYLAXIS AGAINST TRANSPLANT REJECTION
     Dosage: 7 MG, DAILY
     Route: 065
  2. MYCOPHENOLATE MOFETIL [Concomitant]
     Indication: PROPHYLAXIS AGAINST TRANSPLANT REJECTION
     Dosage: 1500 MG, DAILY
     Route: 065

REACTIONS (1)
  - THROMBOTIC MICROANGIOPATHY [None]
